FAERS Safety Report 5221771-0 (Version None)
Quarter: 2007Q1

REPORT INFORMATION
  Report Type: 
  Country: None (occurrence: None)
  Receive Date: 20070129
  Receipt Date: 20070117
  Transmission Date: 20070707
  Serious: Yes (Hospitalization)
  Sender: FDA-Public Use
  Company Number: FR-JNJFOC-20070106162

PATIENT
  Age: 74 Year
  Sex: Female

DRUGS (9)
  1. ACETAMINOPHEN AND TRAMADOL HCL [Suspect]
     Indication: DRUG USE FOR UNKNOWN INDICATION
     Route: 048
  2. ARICEPT [Concomitant]
     Route: 065
  3. VALSARTAN AND HYDROCHLOROTHIAZIDE [Concomitant]
     Route: 065
  4. ICAZ [Concomitant]
     Route: 065
  5. VASTAREL [Concomitant]
     Route: 065
  6. OMEPRAZOLE [Concomitant]
     Route: 065
  7. PREVISCAN [Concomitant]
     Route: 065
  8. PLAQUENIL [Concomitant]
     Route: 065
  9. STABLON [Concomitant]
     Route: 065

REACTIONS (5)
  - CONFUSIONAL STATE [None]
  - PYREXIA [None]
  - TONGUE BITING [None]
  - URINARY INCONTINENCE [None]
  - URINARY TRACT INFECTION [None]
